FAERS Safety Report 20607239 (Version 1)
Quarter: 2022Q1

REPORT INFORMATION
  Report Type: Spontaneous
  Country: CH (occurrence: CH)
  Receive Date: 20220317
  Receipt Date: 20220317
  Transmission Date: 20220423
  Serious: Yes (Hospitalization, Other)
  Sender: FDA-Public Use
  Company Number: CH-SUN PHARMACEUTICAL INDUSTRIES LTD-2022RR-330152

PATIENT
  Age: 67 Year
  Sex: Male

DRUGS (4)
  1. SUNITINIB [Suspect]
     Active Substance: SUNITINIB
     Indication: Metastatic renal cell carcinoma
     Dosage: 50 MILLIGRAM, DAILY, 4 CONSECUTIVE WEEKS EVERY 6 WEEKS
     Route: 048
     Dates: start: 201411, end: 201604
  2. ZOLEDRONIC ACID [Suspect]
     Active Substance: ZOLEDRONIC ACID
     Indication: Metastatic renal cell carcinoma
     Dosage: 4 MILLIGRAM, EVERY 28 DAYS
     Route: 042
     Dates: start: 201411
  3. PREDNISONE [Suspect]
     Active Substance: PREDNISONE
     Indication: Acute kidney injury
     Dosage: 60 MILLIGRAM, DAILY
     Route: 048
     Dates: start: 201712
  4. PREDNISONE [Suspect]
     Active Substance: PREDNISONE
     Dosage: 2.5 MILLIGRAM, DAILY
     Route: 048
     Dates: end: 201804

REACTIONS (3)
  - Osteonecrosis of jaw [Unknown]
  - Disease progression [Unknown]
  - Therapeutic product effect incomplete [Unknown]
